FAERS Safety Report 18675487 (Version 1)
Quarter: 2020Q4

REPORT INFORMATION
  Report Type: Spontaneous
  Country: CN (occurrence: CN)
  Receive Date: 20201229
  Receipt Date: 20201229
  Transmission Date: 20210114
  Serious: Yes (Hospitalization)
  Sender: FDA-Public Use
  Company Number: NVSC2020CN342581

PATIENT
  Age: 56 Year
  Sex: Female
  Weight: 65 kg

DRUGS (1)
  1. AMLODIPINE,VALSARTAN [Suspect]
     Active Substance: AMLODIPINE\VALSARTAN
     Indication: HYPERTENSION
     Dosage: 80 UG, QD
     Route: 048
     Dates: start: 20201203, end: 20201209

REACTIONS (1)
  - Flushing [Recovering/Resolving]

NARRATIVE: CASE EVENT DATE: 20201203
